FAERS Safety Report 19948162 (Version 1)
Quarter: 2021Q4

REPORT INFORMATION
  Report Type: 
  Country: CO (occurrence: CO)
  Receive Date: 20211013
  Receipt Date: 20211013
  Transmission Date: 20220303
  Serious: Yes (Other)
  Sender: FDA-Public Use
  Company Number: None

PATIENT
  Age: 45 Year
  Sex: Female

DRUGS (1)
  1. MOXIFLOXACIN [Suspect]
     Active Substance: MOXIFLOXACIN

REACTIONS (14)
  - Iris transillumination defect [None]
  - Conjunctival hyperaemia [None]
  - Visual acuity reduced [None]
  - Vision blurred [None]
  - Photophobia [None]
  - Iridocyclitis [None]
  - Mydriasis [None]
  - Pigment dispersion syndrome [Recovered/Resolved]
  - Eye pain [None]
  - Intraocular pressure increased [Recovered/Resolved]
  - Uveitic glaucoma [None]
  - Pupils unequal [None]
  - Anterior chamber inflammation [None]
  - Uveitis [None]
